FAERS Safety Report 23916581 (Version 1)
Quarter: 2024Q2

REPORT INFORMATION
  Report Type: Spontaneous
  Country: US (occurrence: None)
  Receive Date: 20240528
  Receipt Date: 20240528
  Transmission Date: 20240716
  Serious: Yes (Death)
  Sender: FDA-Public Use
  Company Number: None

PATIENT
  Age: 77 Year
  Sex: Male
  Weight: 85.23 kg

DRUGS (18)
  1. MYCOPHENOLIC ACID [Suspect]
     Active Substance: MYCOPHENOLIC ACID
     Indication: Renal transplant
     Dosage: FREQUENCY : TWICE A DAY;?
     Route: 048
  2. CYCLOSPORINE [Suspect]
     Active Substance: CYCLOSPORINE
     Indication: Renal transplant
     Dosage: FREQUENCY : TWICE A DAY;?
     Route: 048
  3. aspirin 81 MG TABS [Concomitant]
  4. cyclosporine  MOD 100 MG CAPS [Concomitant]
  5. docusate SODIUM 100 MG CAPS [Concomitant]
  6. Duloxetine DR 30 MG CAPS [Concomitant]
  7. famotidine 20 MG TABS [Concomitant]
  8. Lantus solostar pen inj [Concomitant]
  9. Levetiracetam 500 mg tabs [Concomitant]
  10. Magnesium gluconate 500 mg [Concomitant]
  11. METOPROLOL [Concomitant]
     Active Substance: METOPROLOL
  12. mycophenolic ACID 180 MG DR TABS [Concomitant]
  13. PRAVASTATIN [Concomitant]
     Active Substance: PRAVASTATIN
  14. POLYETHYLENE GLYCOL 3350 [Concomitant]
     Active Substance: POLYETHYLENE GLYCOL 3350
  15. PREGABALIN [Concomitant]
     Active Substance: PREGABALIN
  16. Tamsulosin 0.4 mg caps [Concomitant]
  17. VIT D 3 1000 UNITS [Concomitant]
  18. WES-PHOS 250 MG neutral TABS [Concomitant]

REACTIONS (1)
  - Death [None]

NARRATIVE: CASE EVENT DATE: 20240526
